FAERS Safety Report 7305923-1 (Version None)
Quarter: 2011Q1

REPORT INFORMATION
  Report Type: 
  Country: None (occurrence: None)
  Receive Date: 20110222
  Receipt Date: 20110216
  Transmission Date: 20110831
  Serious: Yes (Death, Other)
  Sender: FDA-Public Use
  Company Number: CA-GENZYME-FLUD-1000720

PATIENT
  Age: 9 Year
  Sex: Male

DRUGS (5)
  1. FLUDARA [Suspect]
     Indication: CORD BLOOD TRANSPLANT THERAPY
     Dosage: 40 MG/M2, QD DAYS -6 TO -2 FOR 5 DOSES
     Route: 042
  2. THYMOGLOBULIN [Suspect]
     Indication: CORD BLOOD TRANSPLANT THERAPY
     Dosage: 2.5 MG/KG, QD DAYS -3 TO -1 FOR 3 DOSES
     Route: 042
  3. MYCOPHENOLATE MOFETIL [Concomitant]
     Indication: PROPHYLAXIS AGAINST GRAFT VERSUS HOST DISEASE
     Dosage: 15 MG/KG, BID, DAY -3 TO 30
     Route: 065
  4. CYCLOPHOSPHAMIDE [Suspect]
     Indication: CORD BLOOD TRANSPLANT THERAPY
     Dosage: 50 MG/KG, ONCE, ON DAY -6
     Route: 042
  5. CYCLOSPORINE [Concomitant]
     Indication: PROPHYLAXIS AGAINST GRAFT VERSUS HOST DISEASE
     Dosage: UNK
     Route: 065

REACTIONS (2)
  - NEOPLASM MALIGNANT [None]
  - CYTOMEGALOVIRUS INFECTION [None]
